FAERS Safety Report 9095656 (Version 1)
Quarter: 2013Q1

REPORT INFORMATION
  Report Type: Spontaneous
  Country: US (occurrence: US)
  Receive Date: 20130219
  Receipt Date: 20130219
  Transmission Date: 20140127
  Serious: Yes (Other)
  Sender: FDA-Public Use
  Company Number: US-PFIZER INC-2013062997

PATIENT
  Age: 73 Year
  Sex: Male
  Weight: 91.61 kg

DRUGS (1)
  1. GABAPENTIN [Suspect]
     Indication: DIABETIC NEUROPATHY
     Dosage: 600 MG, 2X/DAY

REACTIONS (3)
  - Renal disorder [Unknown]
  - Blood creatinine abnormal [Unknown]
  - Pain [Unknown]
